FAERS Safety Report 21885842 (Version 1)
Quarter: 2023Q1

REPORT INFORMATION
  Report Type: Spontaneous
  Country: CZ (occurrence: CZ)
  Receive Date: 20230119
  Receipt Date: 20230119
  Transmission Date: 20230417
  Serious: Yes (Death, Life-Threatening, Other)
  Sender: FDA-Public Use
  Company Number: CZ-PFIZER INC-PV202300009282

PATIENT
  Age: 66 Year
  Sex: Male

DRUGS (3)
  1. MYLOTARG [Suspect]
     Active Substance: GEMTUZUMAB OZOGAMICIN
     Indication: Acute myeloid leukaemia
     Dosage: 5 MG IN D1, D4 AND D7, TOTAL 15MG, INDUCTION THERAPY
     Dates: start: 20220414
  2. DAUNORUBICIN [Suspect]
     Active Substance: DAUNORUBICIN
     Indication: Acute myeloid leukaemia
     Dosage: 122 MG/DOSE ON D1-D3, TOTAL 366 MG, INDUCTION THERAPY
     Dates: start: 20220414, end: 20220416
  3. CYTARABINE [Suspect]
     Active Substance: CYTARABINE
     Indication: Acute myeloid leukaemia
     Dosage: 408 MG/DOSE ON D1-D7, TOTAL 2856 MG, INDUCTION THERAPY
     Dates: start: 20220414, end: 20220420

REACTIONS (25)
  - Multiple organ dysfunction syndrome [Fatal]
  - Metabolic acidosis [Unknown]
  - Circulatory collapse [Unknown]
  - Shock [Unknown]
  - Coagulopathy [Unknown]
  - Ileus paralytic [Unknown]
  - Disseminated intravascular coagulation [Unknown]
  - Mechanical ventilation complication [Unknown]
  - Atrial fibrillation [Recovered/Resolved]
  - Neutropenic colitis [Unknown]
  - Hypertensive crisis [Recovered/Resolved]
  - Intestinal haemorrhage [Unknown]
  - Pancytopenia [Unknown]
  - Hyperbilirubinaemia [Unknown]
  - Renal failure [Unknown]
  - Altered state of consciousness [Unknown]
  - Cardiogenic shock [Unknown]
  - Hypoventilation [Unknown]
  - Hepatic failure [Unknown]
  - Staphylococcal infection [Unknown]
  - Pyrexia [Unknown]
  - Inflammatory marker increased [Unknown]
  - Neoplasm progression [Unknown]
  - Transaminases increased [Unknown]
  - Hypercapnia [Unknown]

NARRATIVE: CASE EVENT DATE: 20220401
